FAERS Safety Report 4585949-1 (Version None)
Quarter: 2005Q1

REPORT INFORMATION
  Report Type: 
  Country: None (occurrence: None)
  Receive Date: 20050214
  Receipt Date: 20040909
  Transmission Date: 20050727
  Serious: Yes (Death, Hospitalization)
  Sender: FDA-Public Use
  Company Number: F01200402762

PATIENT
  Age: 73 Year
  Sex: Female

DRUGS (2)
  1. OXALIPLATIN - SOLUTION - 60 MG/M2 [Suspect]
     Indication: PANCREATIC CARCINOMA
     Dosage: INTRAVENOUS NOS
     Route: 042
     Dates: start: 20040827, end: 20040827
  2. FLUOROURACIL - SOLUTION - 250 MG/M2 [Suspect]
     Dosage: 250 MG/M2/DAY, 7 DAYS A WEEK FOR 5 WEEK INTRAVENOUS NOS
     Route: 042
     Dates: end: 20040827

REACTIONS (27)
  - ANOREXIA [None]
  - AORTIC DISORDER [None]
  - BLOOD ALBUMIN DECREASED [None]
  - BLOOD AMYLASE DECREASED [None]
  - BLOOD CREATININE INCREASED [None]
  - BLOOD GLUCOSE DECREASED [None]
  - BLOOD POTASSIUM DECREASED [None]
  - BLOOD POTASSIUM INCREASED [None]
  - BLOOD SODIUM DECREASED [None]
  - CARBOHYDRATE ANTIGEN 19-9 INCREASED [None]
  - CARCINOEMBRYONIC ANTIGEN INCREASED [None]
  - COMA [None]
  - DYSPHAGIA [None]
  - FATIGUE [None]
  - GENERAL PHYSICAL HEALTH DETERIORATION [None]
  - HAEMOGLOBIN DECREASED [None]
  - HEPATIC FAILURE [None]
  - HYPERGLYCAEMIA [None]
  - METASTASIS [None]
  - MITRAL VALVE INCOMPETENCE [None]
  - OEDEMA PERIPHERAL [None]
  - OESOPHAGITIS [None]
  - PLATELET COUNT DECREASED [None]
  - PROTEIN TOTAL DECREASED [None]
  - TACHYCARDIA [None]
  - WEIGHT DECREASED [None]
  - WEIGHT INCREASED [None]
